FAERS Safety Report 26099997 (Version 1)
Quarter: 2025Q4

REPORT INFORMATION
  Report Type: Spontaneous
  Country: US (occurrence: US)
  Receive Date: 20251128
  Receipt Date: 20251128
  Transmission Date: 20260118
  Serious: Yes (Hospitalization, Other)
  Sender: AMGEN
  Company Number: US-AMGEN-USASP2025231944

PATIENT
  Age: 71 Year
  Sex: Male

DRUGS (1)
  1. XGEVA [Suspect]
     Active Substance: DENOSUMAB
     Indication: Metastases to bone
     Dosage: UNK, QMO
     Route: 065

REACTIONS (12)
  - Critical illness [Unknown]
  - Subdural haematoma [Unknown]
  - Cachexia [Unknown]
  - Hypophagia [Unknown]
  - Fatigue [Unknown]
  - Asthenia [Unknown]
  - Hypocalcaemia [Recovered/Resolved]
  - Fall [Unknown]
  - Blood parathyroid hormone increased [Unknown]
  - Blood albumin decreased [Unknown]
  - Vitamin D increased [Unknown]
  - Blood 1,25-dihydroxycholecalciferol increased [Unknown]
